FAERS Safety Report 5765535-8 (Version None)
Quarter: 2008Q2

REPORT INFORMATION
  Report Type: 
  Country: None (occurrence: None)
  Receive Date: 20080611
  Receipt Date: 20080319
  Transmission Date: 20081010
  Serious: Yes (Disabling)
  Sender: FDA-Public Use
  Company Number: US-MERCK-0803USA03232

PATIENT
  Age: 63 Year
  Sex: Female

DRUGS (3)
  1. VYTORIN [Suspect]
     Indication: BLOOD CHOLESTEROL INCREASED
     Route: 048
     Dates: start: 20050301, end: 20080306
  2. PRILOSEC [Concomitant]
     Route: 065
  3. PEPCID [Concomitant]
     Route: 065

REACTIONS (5)
  - ABASIA [None]
  - CHEST PAIN [None]
  - CHOLELITHIASIS [None]
  - DIZZINESS [None]
  - DYSPEPSIA [None]
